FAERS Safety Report 4620970-6 (Version None)
Quarter: 2005Q1

REPORT INFORMATION
  Report Type: 
  Country: None (occurrence: None)
  Receive Date: 20050325
  Receipt Date: 20050317
  Transmission Date: 20050727
  Serious: Yes (Hospitalization)
  Sender: FDA-Public Use
  Company Number: 2005037395

PATIENT
  Age: 84 Year
  Sex: Female

DRUGS (10)
  1. NITROSTAT [Suspect]
     Indication: CARDIAC DISORDER
     Dosage: MANY YEARS AGO - ONGOING
  2. NITROGLYCERIN [Concomitant]
  3. ALPRAZOLAM [Concomitant]
  4. ISOSORBIDE MONONITRATE [Concomitant]
  5. CARVEDILOL [Concomitant]
  6. POTASSIUM ACETATE [Concomitant]
  7. ROSIGLITAZONE MALEATE [Concomitant]
  8. IRBESARTAN [Concomitant]
  9. ESCITALOPRAM OXALATE [Concomitant]
  10. HUMULIN 70/30 [Concomitant]

REACTIONS (3)
  - HEART RATE INCREASED [None]
  - HEART RATE IRREGULAR [None]
  - LOWER LIMB FRACTURE [None]
